FAERS Safety Report 9014670 (Version 3)
Quarter: 2013Q1

REPORT INFORMATION
  Report Type: Report from Study
  Country: DE (occurrence: DE)
  Receive Date: 20130115
  Receipt Date: 20130221
  Transmission Date: 20140127
  Serious: Yes (Death, Hospitalization, Other)
  Sender: FDA-Public Use
  Company Number: DE-ROCHE-1178836

PATIENT
  Sex: Female
  Weight: 44 kg

DRUGS (3)
  1. BEVACIZUMAB [Suspect]
     Indication: BREAST CANCER METASTATIC
     Dosage: LAST DOSE PRIOR TO SAE:28/NOV/2012
     Route: 042
  2. PACLITAXEL [Suspect]
     Indication: BREAST CANCER METASTATIC
     Dosage: LAST DOSE PRIOR TO SAE: 28/NOV/2012
     Route: 042
  3. DENOSUMAB [Suspect]
     Indication: BREAST CANCER METASTATIC
     Dosage: LAST DOSE PRIOR TO SAE: 26/NOV/2012
     Route: 058

REACTIONS (6)
  - Sepsis [Fatal]
  - Multi-organ failure [Fatal]
  - Necrotising fasciitis [Not Recovered/Not Resolved]
  - Bursitis [Not Recovered/Not Resolved]
  - Haemorrhagic anaemia [Not Recovered/Not Resolved]
  - Cellulitis [Not Recovered/Not Resolved]
